FAERS Safety Report 7995005-8 (Version None)
Quarter: 2011Q4

REPORT INFORMATION
  Report Type: 
  Country: None (occurrence: None)
  Receive Date: 20111220
  Receipt Date: 20111214
  Transmission Date: 20120403
  Serious: Yes (Death)
  Sender: FDA-Public Use
  Company Number: PL-SANOFI-AVENTIS-2011SA082081

PATIENT
  Age: 60 Year
  Sex: Male
  Weight: 70 kg

DRUGS (4)
  1. ALL OTHER THERAPEUTIC PRODUCTS [Concomitant]
     Indication: PREMEDICATION
  2. CABAZITAXEL [Suspect]
     Route: 042
     Dates: start: 20111128, end: 20111128
  3. CABAZITAXEL [Suspect]
     Route: 042
     Dates: start: 20111010, end: 20111010
  4. CABAZITAXEL [Suspect]
     Route: 042
     Dates: start: 20110916, end: 20110916

REACTIONS (2)
  - CEREBRAL HAEMORRHAGE [None]
  - THROMBOCYTOPENIA [None]
